FAERS Safety Report 19134441 (Version 1)
Quarter: 2021Q2

REPORT INFORMATION
  Report Type: Spontaneous
  Country: US (occurrence: US)
  Receive Date: 20210414
  Receipt Date: 20210414
  Transmission Date: 20210717
  Serious: Yes (Other)
  Sender: FDA-Public Use
  Company Number: None

PATIENT

DRUGS (1)
  1. LEVEMIR [Suspect]
     Active Substance: INSULIN DETEMIR
     Dates: start: 20210228, end: 20210401

REACTIONS (3)
  - Depressed level of consciousness [None]
  - Blood glucose decreased [None]
  - Product measured potency issue [None]
